FAERS Safety Report 7251542-5 (Version None)
Quarter: 2011Q1

REPORT INFORMATION
  Report Type: 
  Country: None (occurrence: None)
  Receive Date: 20110128
  Receipt Date: 20110114
  Transmission Date: 20110831
  Serious: Yes (Hospitalization, Other)
  Sender: FDA-Public Use
  Company Number: US-ELI_LILLY_AND_COMPANY-US201002007437

PATIENT
  Sex: Female
  Weight: 68.934 kg

DRUGS (8)
  1. VITAMIN D [Concomitant]
     Dosage: UNK, UNKNOWN
     Route: 065
  2. CALCIUM CITRATE [Concomitant]
     Dosage: UNK, UNKNOWN
     Route: 065
  3. PRINIVIL [Concomitant]
     Dosage: 10 MG, 2/D
  4. MAGNESIUM [Concomitant]
     Dosage: 250 MG, 2/D
  5. VIT C [Concomitant]
     Dosage: 250 MG, 2/D
  6. LISINOPRIL [Concomitant]
     Dosage: UNK, UNKNOWN
     Route: 065
  7. CALCIUM +VIT D [Concomitant]
     Dosage: 1500/50002 IU, UNK
  8. FORTEO [Suspect]
     Indication: OSTEOPOROSIS
     Dosage: 20 MG, DAILY (1/D)
     Route: 058
     Dates: start: 20090601

REACTIONS (5)
  - TRANSIENT GLOBAL AMNESIA [None]
  - FALL [None]
  - VITAMIN D DECREASED [None]
  - INJECTION SITE ERYTHEMA [None]
  - VEIN DISORDER [None]
